FAERS Safety Report 14332572 (Version 4)
Quarter: 2018Q1

REPORT INFORMATION
  Report Type: Spontaneous
  Country: DE (occurrence: DE)
  Receive Date: 20171228
  Receipt Date: 20180306
  Transmission Date: 20180509
  Serious: Yes (Hospitalization, Other)
  Sender: FDA-Public Use
  Company Number: DE-GLAXOSMITHKLINE-DE2017200318

PATIENT
  Age: 35 Year
  Sex: Female

DRUGS (13)
  1. LEVOMETHADONE [Concomitant]
     Active Substance: LEVOMETHADONE
     Dosage: 14 ML DAILY
     Route: 050
  2. DIAZEPAM. [Suspect]
     Active Substance: DIAZEPAM
     Indication: PRODUCT USED FOR UNKNOWN INDICATION
     Dosage: 30 MG, UNK
     Route: 065
  3. AMITRIPTYLINE [Concomitant]
     Active Substance: AMITRIPTYLINE
     Indication: PRODUCT USED FOR UNKNOWN INDICATION
     Dosage: UNK
     Route: 065
  4. METHYLPHENIDATE. [Concomitant]
     Active Substance: METHYLPHENIDATE
     Indication: PRODUCT USED FOR UNKNOWN INDICATION
     Dosage: UNK
     Route: 042
  5. CLONIDINE. [Concomitant]
     Active Substance: CLONIDINE
     Indication: DRUG WITHDRAWAL MAINTENANCE THERAPY
     Dosage: UNK
     Route: 065
  6. LEVOMETHADONE [Concomitant]
     Active Substance: LEVOMETHADONE
     Indication: PRODUCT USED FOR UNKNOWN INDICATION
     Dosage: 8 ML, QD
     Route: 065
  7. MIRTAZAPINE. [Concomitant]
     Active Substance: MIRTAZAPINE
     Indication: PRODUCT USED FOR UNKNOWN INDICATION
     Dosage: UNK
     Route: 065
  8. BUPROPION. [Suspect]
     Active Substance: BUPROPION
     Indication: PRODUCT USED FOR UNKNOWN INDICATION
     Dosage: TOTAL OF 25 TIMES
     Route: 042
  9. PIRITRAMIDE [Suspect]
     Active Substance: PIRITRAMIDE
     Indication: PAIN
     Dosage: UNK
     Route: 050
  10. OXAZEPAM. [Concomitant]
     Active Substance: OXAZEPAM
     Indication: DRUG WITHDRAWAL MAINTENANCE THERAPY
     Dosage: 100 MG, UNK
     Route: 065
  11. LEVETIRACETAM. [Concomitant]
     Active Substance: LEVETIRACETAM
     Indication: DRUG WITHDRAWAL MAINTENANCE THERAPY
     Dosage: 2000 MG, UNK
     Route: 065
  12. FENTANYL. [Concomitant]
     Active Substance: FENTANYL
     Indication: PRODUCT USED FOR UNKNOWN INDICATION
     Dosage: UNK
     Route: 042
  13. PREGABALIN. [Concomitant]
     Active Substance: PREGABALIN
     Indication: PRODUCT USED FOR UNKNOWN INDICATION
     Dosage: 900 MG, QD
     Route: 048

REACTIONS (24)
  - Drug withdrawal convulsions [Recovered/Resolved]
  - Injection site discharge [Unknown]
  - Product use issue [Unknown]
  - Dyspnoea [Unknown]
  - Administration site abscess sterile [Unknown]
  - Drug abuse [Unknown]
  - Hypoaesthesia [Unknown]
  - Euphoric mood [Unknown]
  - Chills [Unknown]
  - Withdrawal syndrome [Unknown]
  - Pain [Unknown]
  - Pyrexia [Unknown]
  - Injection site abscess [Recovered/Resolved]
  - Injection site erythema [Unknown]
  - Altered state of consciousness [Unknown]
  - Paraesthesia [Unknown]
  - Akathisia [Unknown]
  - Tremor [Unknown]
  - Injection site induration [Unknown]
  - Seizure [Unknown]
  - Erythema [Unknown]
  - Osteomyelitis [Unknown]
  - Drug dependence [Unknown]
  - Generalised tonic-clonic seizure [Recovered/Resolved]
